FAERS Safety Report 7602695-8 (Version None)
Quarter: 2011Q2

REPORT INFORMATION
  Report Type: 
  Country: None (occurrence: None)
  Receive Date: 20110630
  Receipt Date: 20110620
  Transmission Date: 20111010
  Serious: Yes (Other)
  Sender: FDA-Public Use
  Company Number: DKLU1071404

PATIENT
  Age: 31 Year
  Sex: Female

DRUGS (7)
  1. ZOLOFT [Concomitant]
  2. FELBATOL [Concomitant]
  3. KEPPRA [Concomitant]
  4. LITHIUM CARBONATE [Concomitant]
  5. SABRIL [Suspect]
     Indication: CONVULSION
     Dosage: SEE IMAGE
     Route: 048
     Dates: start: 20110412
  6. SABRIL [Suspect]
     Indication: CONVULSION
     Dosage: SEE IMAGE
     Route: 048
     Dates: start: 20091001
  7. BENZODIAZEPINE (BENZODIAZEPINE RELATED DRUGS) [Concomitant]

REACTIONS (1)
  - GRAND MAL CONVULSION [None]
